FAERS Safety Report 6923435-1 (Version None)
Quarter: 2010Q3

REPORT INFORMATION
  Report Type: 
  Country: None (occurrence: None)
  Receive Date: 20100813
  Receipt Date: 20100810
  Transmission Date: 20110219
  Serious: Yes (Death, Hospitalization)
  Sender: FDA-Public Use
  Company Number: NO-NAPPMUNDI-GBR-2010-0006747

PATIENT
  Sex: Female

DRUGS (4)
  1. TARGINIQ DEPOTTABLETT [Suspect]
     Indication: CANCER PAIN
     Dosage: (40+40+40) MG
     Route: 048
  2. OXYCONTIN DEPOTTABLETTER [Suspect]
     Indication: CANCER PAIN
     Dosage: (100+60+100) MG
     Route: 048
  3. OXYCONTIN DEPOTTABLETTER [Suspect]
     Dosage: (120+80+120) MG
     Route: 048
  4. OXYCONTIN DEPOTTABLETTER [Suspect]
     Dosage: (80+40+80) MG
     Route: 048
     Dates: start: 20090301

REACTIONS (7)
  - ALANINE AMINOTRANSFERASE INCREASED [None]
  - ASPARTATE AMINOTRANSFERASE INCREASED [None]
  - CONSTIPATION [None]
  - DEATH [None]
  - FATIGUE [None]
  - OVERDOSE [None]
  - URINARY TRACT INFECTION [None]
